FAERS Safety Report 15435096 (Version 1)
Quarter: 2018Q3

REPORT INFORMATION
  Report Type: Spontaneous
  Country: US (occurrence: US)
  Receive Date: 20180924
  Receipt Date: 20180924
  Transmission Date: 20181010
  Serious: Yes (Hospitalization)
  Sender: FDA-Public Use
  Company Number: None

PATIENT
  Sex: Male

DRUGS (22)
  1. OXYCODONE 5MG [Concomitant]
     Active Substance: OXYCODONE
  2. HYDROCODONE SOL 10?325MG [Concomitant]
  3. PROSTAGLAND POW E1 [Concomitant]
  4. FUROSEMIDE 20MG [Concomitant]
     Active Substance: FUROSEMIDE
  5. LEVOTHYROXIN 75MCG [Concomitant]
     Active Substance: LEVOTHYROXINE
  6. MODAFINIL 200MG [Concomitant]
     Active Substance: MODAFINIL
  7. MONTELUKAST [Concomitant]
     Active Substance: MONTELUKAST SODIUM
  8. NADOLOL 40MG [Concomitant]
  9. TESTOPEL [Suspect]
     Active Substance: TESTOSTERONE
     Indication: TESTICULAR FAILURE
     Dosage: ?          OTHER FREQUENCY:EVERY 3 MONTHS;?
     Route: 058
     Dates: start: 20160310
  10. CALCIUM+D [Concomitant]
     Active Substance: CALCIUM\VITAMIN D
  11. ASPIRIN 81MG [Concomitant]
     Active Substance: ASPIRIN
  12. CIALIS [Concomitant]
     Active Substance: TADALAFIL
  13. BENZONATATE 200MG [Concomitant]
     Active Substance: BENZONATATE
  14. CULTURELLE [Concomitant]
     Active Substance: LACTOBACILLUS RHAMNOSUS
  15. DILTIAZEM 30MG [Concomitant]
  16. FLONASE [Concomitant]
     Active Substance: FLUTICASONE PROPIONATE
  17. IMODIUM A?D 2MG [Concomitant]
  18. OMEPARZOLE 20MG [Concomitant]
  19. ADVAIR HFA [Concomitant]
     Active Substance: FLUTICASONE PROPIONATE\SALMETEROL XINAFOATE
  20. CENTRUM [Concomitant]
     Active Substance: VITAMINS
  21. CLARITIN [Concomitant]
     Active Substance: LORATADINE
  22. MEYTHYLPRED 4MG [Concomitant]

REACTIONS (1)
  - Pneumonia [None]
